FAERS Safety Report 14636648 (Version 1)
Quarter: 2018Q1

REPORT INFORMATION
  Report Type: Spontaneous
  Country: ZA (occurrence: ZA)
  Receive Date: 20180314
  Receipt Date: 20180314
  Transmission Date: 20180509
  Serious: Yes (Hospitalization)
  Sender: FDA-Public Use
  Company Number: PHHY2017ZA108422

PATIENT
  Age: 79 Year
  Sex: Female

DRUGS (2)
  1. BISOHEXAL [Suspect]
     Active Substance: BISOPROLOL FUMARATE
     Indication: HYPERTENSION
     Dosage: 5 MG, UNK
     Route: 048
     Dates: end: 201712
  2. BROMAZEPAM SANDOZ [Suspect]
     Active Substance: BROMAZEPAM
     Indication: ANXIETY
     Dosage: 6 MG, UNK
     Route: 048
     Dates: start: 201712, end: 201801

REACTIONS (4)
  - Blood pressure fluctuation [Unknown]
  - Renal cyst [Unknown]
  - Back pain [Unknown]
  - Renal pain [Unknown]

NARRATIVE: CASE EVENT DATE: 201707
